FAERS Safety Report 7504729-8 (Version None)
Quarter: 2011Q2

REPORT INFORMATION
  Report Type: 
  Country: None (occurrence: None)
  Receive Date: 20110525
  Receipt Date: 20101214
  Transmission Date: 20111010
  Serious: No
  Sender: FDA-Public Use
  Company Number: US-AMGEN-KDL399970

PATIENT
  Age: 85 Year
  Sex: Female
  Weight: 90.703 kg

DRUGS (9)
  1. ARANESP [Suspect]
     Indication: RENAL FAILURE CHRONIC
     Dosage: 100 A?G, UNK
     Dates: start: 20090825
  2. FUROSEMIDE [Concomitant]
     Dosage: UNK UNK, UNK
  3. SPIRONOLACTONE [Concomitant]
     Dosage: UNK UNK, UNK
  4. CARVEDILOL [Concomitant]
     Dosage: UNK UNK, UNK
  5. ARANESP [Suspect]
     Dosage: UNK UNK, QMO
     Dates: start: 20090101
  6. ASPIRIN [Concomitant]
     Dosage: UNK UNK, UNK
  7. CLOPIDOGREL BISULFATE [Concomitant]
     Dosage: UNK UNK, UNK
  8. PRORENAL [Concomitant]
     Dates: start: 20100101
  9. ACIDOPHILUS [Concomitant]
     Dosage: UNK UNK, UNK

REACTIONS (3)
  - RASH [None]
  - SENSORY DISTURBANCE [None]
  - INFLUENZA LIKE ILLNESS [None]
